FAERS Safety Report 25729839 (Version 1)
Quarter: 2025Q3

REPORT INFORMATION
  Report Type: Spontaneous
  Country: US (occurrence: US)
  Receive Date: 20250827
  Receipt Date: 20250827
  Transmission Date: 20251021
  Serious: Yes (Other)
  Sender: JOHNSON AND JOHNSON
  Company Number: US-JNJFOC-20250821516

PATIENT

DRUGS (1)
  1. TECVAYLI [Suspect]
     Active Substance: TECLISTAMAB-CQYV
     Indication: Product used for unknown indication
     Route: 065

REACTIONS (6)
  - Cardiac amyloidosis [Recovered/Resolved]
  - Cataract [Recovered/Resolved]
  - Muscle atrophy [Unknown]
  - Taste disorder [Unknown]
  - Nail disorder [Recovered/Resolved]
  - Dehydration [Unknown]
